FAERS Safety Report 8173897-X (Version None)
Quarter: 2012Q1

REPORT INFORMATION
  Report Type: 
  Country: None (occurrence: None)
  Receive Date: 20120229
  Receipt Date: 20120215
  Transmission Date: 20120608
  Serious: Yes (Other)
  Sender: FDA-Public Use
  Company Number: IT-ELI_LILLY_AND_COMPANY-IT201202005048

PATIENT
  Sex: Male

DRUGS (3)
  1. CYMBALTA [Suspect]
     Indication: DEPRESSION
     Dosage: 60 MG, UNKNOWN
     Dates: start: 20110101, end: 20120101
  2. INSULIN [Concomitant]
  3. CYMBALTA [Suspect]
     Dosage: 30 MG, UNKNOWN
     Dates: start: 20120101

REACTIONS (3)
  - DRUG WITHDRAWAL SYNDROME [None]
  - DIZZINESS [None]
  - CONFUSIONAL STATE [None]
